FAERS Safety Report 7630232-0 (Version None)
Quarter: 2011Q3

REPORT INFORMATION
  Report Type: 
  Country: None (occurrence: None)
  Receive Date: 20110722
  Receipt Date: 20110719
  Transmission Date: 20111222
  Serious: Yes (Death, Other)
  Sender: FDA-Public Use
  Company Number: US-CELGENEUS-163-21880-11012115

PATIENT
  Sex: Male
  Weight: 73.548 kg

DRUGS (17)
  1. REVLIMID [Suspect]
     Indication: MULTIPLE MYELOMA
     Dosage: 25 MILLIGRAM
     Route: 048
     Dates: start: 20081101
  2. TOPROL-XL [Concomitant]
     Dosage: 25 MILLIGRAM
     Route: 065
  3. AREDIA [Concomitant]
     Dosage: 30 MILLIGRAM
     Route: 065
  4. VITAMIN D [Concomitant]
     Dosage: 5000 IU (INTERNATIONAL UNIT)
     Route: 065
  5. LISINOPRIL [Concomitant]
     Dosage: 20 MILLIGRAM
     Route: 065
  6. ASPIRIN [Concomitant]
     Dosage: 81 MILLIGRAM
     Route: 065
  7. VELCADE [Concomitant]
     Dosage: 3.5 MILLIGRAM
     Route: 050
  8. LEVOTHYROXINE SODIUM [Concomitant]
     Dosage: 50 MICROGRAM
     Route: 065
  9. LYRICA [Concomitant]
     Dosage: 75 MILLIGRAM
     Route: 065
  10. OMEPRAZOLE [Concomitant]
     Dosage: 40 MILLIGRAM
     Route: 065
  11. DEXAMETHASONE [Concomitant]
     Dosage: 4 MILLIGRAM
     Route: 065
  12. SIMVASTATIN [Concomitant]
     Dosage: 40 MILLIGRAM
     Route: 065
  13. IMODIUM MULTI-SYMPTOM RELIEF [Concomitant]
     Route: 065
     Dates: start: 20100211
  14. POTASSIUM [Concomitant]
     Dosage: 75 MILLIGRAM
     Route: 065
  15. AMLODIPINE [Concomitant]
     Dosage: 5 MILLIGRAM
     Route: 065
  16. VITAMIN B-12 [Concomitant]
     Route: 065
  17. ARANESP [Concomitant]
     Dosage: 100 MICROGRAM
     Route: 050

REACTIONS (9)
  - RENAL FAILURE ACUTE [None]
  - GASTROENTERITIS [None]
  - CORONARY ARTERY DISEASE [None]
  - BRONCHITIS [None]
  - ORAL HERPES [None]
  - CARDIAC ARREST [None]
  - DEHYDRATION [None]
  - RED BLOOD CELL COUNT DECREASED [None]
  - HYPERKALAEMIA [None]
